FAERS Safety Report 19225338 (Version 1)
Quarter: 2021Q2

REPORT INFORMATION
  Report Type: Spontaneous
  Country: CN (occurrence: CN)
  Receive Date: 20210506
  Receipt Date: 20210506
  Transmission Date: 20210717
  Serious: Yes (Death, Life-Threatening, Other)
  Sender: FDA-Public Use
  Company Number: CN-NATCO PHARMA-2021NAT00021

PATIENT
  Age: 56 Year
  Sex: Male

DRUGS (3)
  1. AZACITIDINE. [Suspect]
     Active Substance: AZACITIDINE
     Indication: ACUTE MYELOID LEUKAEMIA
     Dosage: UNK
     Route: 065
     Dates: start: 2020
  2. TISLELIZUMAB [Suspect]
     Active Substance: TISLELIZUMAB
     Indication: ACUTE MYELOID LEUKAEMIA
     Dosage: 200 MG (ON DAY 1)
     Route: 042
  3. AZACITIDINE. [Suspect]
     Active Substance: AZACITIDINE
     Dosage: 100 MG (ON DAYS 1?7)
     Route: 058
     Dates: start: 202003

REACTIONS (7)
  - Metabolic acidosis [Not Recovered/Not Resolved]
  - Shock [Recovered/Resolved]
  - Acute graft versus host disease [Fatal]
  - Adrenal insufficiency [Unknown]
  - Infection [Not Recovered/Not Resolved]
  - Autoimmune encephalopathy [Not Recovered/Not Resolved]
  - Septic shock [Not Recovered/Not Resolved]
